FAERS Safety Report 15481064 (Version 1)
Quarter: 2018Q4

REPORT INFORMATION
  Report Type: Spontaneous
  Country: FR (occurrence: FR)
  Receive Date: 20181010
  Receipt Date: 20181010
  Transmission Date: 20190205
  Serious: Yes (Hospitalization, Other)
  Sender: FDA-Public Use
  Company Number: FR-SA-2017SA255882

PATIENT
  Age: 13 Year
  Sex: Male

DRUGS (22)
  1. HYDROCORTISONE. [Suspect]
     Active Substance: HYDROCORTISONE
     Indication: ACUTE LYMPHOCYTIC LEUKAEMIA
     Dosage: 15 UNK
     Route: 037
     Dates: start: 20170122, end: 20170202
  2. HYDROCORTISONE. [Suspect]
     Active Substance: HYDROCORTISONE
     Dosage: 15 UNK
     Route: 037
     Dates: start: 20171002
  3. CYTARABINE. [Suspect]
     Active Substance: CYTARABINE
     Dosage: 30 UNK
     Route: 037
     Dates: start: 20171002
  4. ONCASPAR [Suspect]
     Active Substance: PEGASPARGASE
     Indication: ACUTE LYMPHOCYTIC LEUKAEMIA
     Dosage: 2175 IU,QD
     Route: 042
     Dates: start: 20170919, end: 20171003
  5. ONCASPAR [Suspect]
     Active Substance: PEGASPARGASE
     Dosage: 2175 UNK
     Route: 042
     Dates: start: 20171003
  6. CYTARABINE. [Suspect]
     Active Substance: CYTARABINE
     Indication: ACUTE LYMPHOCYTIC LEUKAEMIA
     Dosage: 30 UNK
     Route: 037
     Dates: start: 20170122, end: 20170202
  7. VINCRISTINE [Suspect]
     Active Substance: VINCRISTINE
     Dosage: 2 MG,QD
     Route: 042
     Dates: start: 20170915, end: 20171006
  8. DAUNORUBICIN [Suspect]
     Active Substance: DAUNORUBICIN
     Dosage: 52.5 UNK
     Route: 042
     Dates: start: 20171006
  9. VINCRISTINE [Suspect]
     Active Substance: VINCRISTINE
     Dosage: 2 UNK
     Route: 042
     Dates: start: 20171006
  10. PREDNISONE. [Suspect]
     Active Substance: PREDNISONE
     Dosage: 110 MG, QD
     Route: 048
     Dates: start: 20170915
  11. DAUNORUBICIN [Suspect]
     Active Substance: DAUNORUBICIN
     Dosage: 52.5 MG,QD
     Route: 042
     Dates: start: 20170915, end: 20171006
  12. HYDROCORTISONE. [Suspect]
     Active Substance: HYDROCORTISONE
     Dosage: 15 MG,QD
     Route: 037
     Dates: start: 20170920, end: 20171002
  13. PREDNISONE. [Suspect]
     Active Substance: PREDNISONE
     Dosage: 45 UNK
     Route: 048
     Dates: start: 20170117, end: 20170213
  14. ONCASPAR [Suspect]
     Active Substance: PEGASPARGASE
     Dosage: 1800 UNK
     Route: 042
     Dates: start: 20170121
  15. PREDNISONE. [Suspect]
     Active Substance: PREDNISONE
     Dosage: 110 UNK
     Route: 048
     Dates: start: 20171006
  16. METHOTREXATE. [Suspect]
     Active Substance: METHOTREXATE
     Indication: ACUTE LYMPHOCYTIC LEUKAEMIA
     Dosage: 15 MG,QD
     Route: 037
     Dates: start: 20170920, end: 20171002
  17. METHOTREXATE. [Suspect]
     Active Substance: METHOTREXATE
     Dosage: 12 UNK
     Route: 037
     Dates: start: 20170110, end: 20170202
  18. PREDNISOLONE. [Suspect]
     Active Substance: PREDNISOLONE
     Indication: ACUTE LYMPHOCYTIC LEUKAEMIA
     Dosage: 110 MG,QD
     Route: 048
     Dates: start: 20170915, end: 20171006
  19. CYTARABINE. [Suspect]
     Active Substance: CYTARABINE
     Dosage: 30 MG,QD
     Route: 037
     Dates: start: 20170920, end: 20171002
  20. VINCRISTINE [Suspect]
     Active Substance: VINCRISTINE
     Indication: ACUTE LYMPHOCYTIC LEUKAEMIA
     Dosage: 1.1 UNK
     Route: 042
     Dates: start: 20170117, end: 20170207
  21. METHOTREXATE. [Suspect]
     Active Substance: METHOTREXATE
     Dosage: 15 UNK
     Route: 037
     Dates: start: 20171002
  22. DAUNORUBICIN [Suspect]
     Active Substance: DAUNORUBICIN
     Indication: ACUTE LYMPHOCYTIC LEUKAEMIA
     Dosage: 22 UNK
     Route: 042
     Dates: start: 20170117, end: 20170207

REACTIONS (2)
  - Hypofibrinogenaemia [Recovered/Resolved]
  - Hypofibrinogenaemia [Recovered/Resolved]

NARRATIVE: CASE EVENT DATE: 20170202
